FAERS Safety Report 15869155 (Version 3)
Quarter: 2019Q1

REPORT INFORMATION
  Report Type: Spontaneous
  Country: JP (occurrence: JP)
  Receive Date: 20190125
  Receipt Date: 20190313
  Transmission Date: 20190417
  Serious: Yes (Other)
  Sender: FDA-Public Use
  Company Number: ALJP2019JP000442

PATIENT
  Age: 78 Year
  Sex: Female

DRUGS (5)
  1. BSS PLUS [Suspect]
     Active Substance: CALCIUM CHLORIDE\DEXTROSE\MAGNESIUM CHLORIDE\OXIGLUTATIONE\POTASSIUM CHLORIDE\SODIUM BICARBONATE\SODIUM CHLORIDE\SODIUM PHOSPHATE\SODIUM PHOSPHATE, DIBASIC
     Indication: EYE IRRIGATION
     Dosage: UNK UNK, ONCE/SINGLE
     Route: 031
     Dates: start: 20190117, end: 20190117
  2. VISCOAT [Concomitant]
     Indication: INTRAOPERATIVE CARE
     Dosage: UNK, ONCE/SINGLE
     Route: 031
     Dates: start: 20190117, end: 20190117
  3. BSS PLUS [Suspect]
     Active Substance: CALCIUM CHLORIDE\DEXTROSE\MAGNESIUM CHLORIDE\OXIGLUTATIONE\POTASSIUM CHLORIDE\SODIUM BICARBONATE\SODIUM CHLORIDE\SODIUM PHOSPHATE\SODIUM PHOSPHATE, DIBASIC
     Indication: CATARACT OPERATION
  4. CEFAZOLIN SODIUM. [Concomitant]
     Active Substance: CEFAZOLIN SODIUM
     Indication: INTRAOPERATIVE CARE
     Route: 065
  5. TARIVID [Concomitant]
     Active Substance: OFLOXACIN
     Indication: POSTOPERATIVE CARE
     Route: 065

REACTIONS (4)
  - Corneal oedema [Unknown]
  - Anterior chamber cell [Unknown]
  - Toxic anterior segment syndrome [Recovering/Resolving]
  - Product quality issue [Unknown]

NARRATIVE: CASE EVENT DATE: 20190118
